FAERS Safety Report 21052113 (Version 1)
Quarter: 2022Q3

REPORT INFORMATION
  Report Type: Spontaneous
  Country: PK (occurrence: None)
  Receive Date: 20220707
  Receipt Date: 20220707
  Transmission Date: 20221026
  Serious: Yes (Death, Other)
  Sender: FDA-Public Use
  Company Number: PK-ROCHE-3131211

PATIENT
  Age: 55 Year
  Sex: Female

DRUGS (2)
  1. RITUXIMAB [Suspect]
     Active Substance: RITUXIMAB
     Indication: Rheumatoid arthritis
     Dosage: FIRST DOSE OF RISTOVA ADMINISTERED 2 WEEKS PRIOR
     Route: 041
  2. RITUXIMAB [Suspect]
     Active Substance: RITUXIMAB
     Dosage: 2ND DOSE
     Route: 041
     Dates: start: 20220628

REACTIONS (7)
  - Death [Fatal]
  - Respiratory distress [Unknown]
  - Gastroenteritis [Unknown]
  - Dehydration [Unknown]
  - Dengue fever [Unknown]
  - Platelet count decreased [Unknown]
  - Haemoglobin decreased [Unknown]
